FAERS Safety Report 4356005-2 (Version None)
Quarter: 2004Q2

REPORT INFORMATION
  Report Type: 
  Country: None (occurrence: None)
  Receive Date: 20040505
  Receipt Date: 20040426
  Transmission Date: 20050107
  Serious: No
  Sender: FDA-Public Use
  Company Number: 200411749BCC

PATIENT
  Age: 83 Year
  Sex: Female
  Weight: 66.6788 kg

DRUGS (7)
  1. MILK OF MAGNESIA TAB [Suspect]
     Indication: CONSTIPATION
     Dosage: 60 ML, ONCE, ORAL
     Route: 048
     Dates: start: 20040411
  2. DILTIAZEM [Concomitant]
  3. ATENOLOL [Concomitant]
  4. PRINIVIL [Concomitant]
  5. LIPITOR [Concomitant]
  6. PRILOSEC [Concomitant]
  7. ECOTRIN [Concomitant]

REACTIONS (2)
  - ABDOMINAL PAIN LOWER [None]
  - HAEMATOCHEZIA [None]
